FAERS Safety Report 9042674 (Version 1)
Quarter: 2013Q1

REPORT INFORMATION
  Report Type: Report from Study
  Country: US (occurrence: US)
  Receive Date: 20130129
  Receipt Date: 20130129
  Transmission Date: 20140127
  Serious: No
  Sender: FDA-Public Use
  Company Number: US-ABBOTT-12P-163-0905642-00

PATIENT
  Age: 62 Year
  Sex: Female
  Weight: 72.64 kg

DRUGS (6)
  1. HUMIRA 40 MG/0.8 ML PEN [Suspect]
     Indication: RHEUMATOID ARTHRITIS
     Dates: start: 201201
  2. METHOTREXATE [Concomitant]
     Indication: RHEUMATOID ARTHRITIS
  3. PREDNISONE [Concomitant]
     Indication: RHEUMATOID ARTHRITIS
  4. AZOR [Concomitant]
     Indication: HYPERTENSION
  5. NORTRIPTYLINE [Concomitant]
     Indication: MIGRAINE
  6. GABAPENTIN [Concomitant]
     Indication: MIGRAINE

REACTIONS (4)
  - Incorrect route of drug administration [Not Recovered/Not Resolved]
  - Injection site pain [Recovered/Resolved]
  - Hypoaesthesia [Recovering/Resolving]
  - Wrong technique in drug usage process [Not Recovered/Not Resolved]
